FAERS Safety Report 9557700 (Version 2)
Quarter: 2013Q3

REPORT INFORMATION
  Report Type: Spontaneous
  Country: JP (occurrence: None)
  Receive Date: 20130910
  Receipt Date: 20130912
  Transmission Date: 20140515
  Serious: Yes (Life-Threatening, Other)
  Sender: FDA-Public Use
  Company Number: 2013037771

PATIENT
  Age: 79 Year
  Sex: Female

DRUGS (2)
  1. ALBUMINAR [Suspect]
     Indication: SHOCK HAEMORRHAGIC
     Dosage: MONTH OF INJECTION
     Route: 042
  2. BLOOD TRANSUFSION, AUXILIARY PRODUCT (BLOOD TRANSFUSION, AUXILIARY PRODUCTS) [Concomitant]

REACTIONS (3)
  - Insulin autoimmune syndrome [None]
  - Myelodysplastic syndrome [None]
  - Hypoglycaemia [None]
